FAERS Safety Report 5194403-8 (Version None)
Quarter: 2006Q4

REPORT INFORMATION
  Report Type: 
  Country: None (occurrence: None)
  Receive Date: 20061228
  Receipt Date: 20061221
  Transmission Date: 20070319
  Serious: Yes (Life-Threatening, Disabling)
  Sender: FDA-Public Use
  Company Number: ES-PFIZER INC-2006155415

PATIENT
  Sex: Male
  Weight: 84 kg

DRUGS (9)
  1. ATORVASTATIN CALCIUM [Suspect]
     Indication: CORONARY ARTERY DISEASE
     Route: 048
     Dates: start: 20050711, end: 20061004
  2. ASPIRIN [Concomitant]
     Route: 048
  3. METFORMIN HCL [Concomitant]
     Route: 048
     Dates: start: 20041021
  4. AVANDIA [Concomitant]
     Route: 048
     Dates: start: 20041021
  5. NITROGLYCERIN [Concomitant]
     Route: 062
     Dates: start: 20041021
  6. RAMIPRIL [Concomitant]
     Route: 048
     Dates: start: 20041021
  7. ATENOLOL [Concomitant]
     Route: 048
     Dates: start: 20041021
  8. TORSEMIDE [Concomitant]
     Route: 048
     Dates: start: 20041021
  9. INSULIN [Concomitant]
     Route: 058
     Dates: start: 20040101

REACTIONS (4)
  - ADRENAL MASS [None]
  - DERMATOMYOSITIS [None]
  - HEPATIC STEATOSIS [None]
  - LUNG NEOPLASM MALIGNANT [None]
